FAERS Safety Report 22159980 (Version 1)
Quarter: 2023Q1

REPORT INFORMATION
  Report Type: Other
  Country: US (occurrence: None)
  Receive Date: 20230331
  Receipt Date: 20230331
  Transmission Date: 20230417
  Serious: Yes (Other)
  Sender: FDA-Public Use
  Company Number: US-ROCHE-3316125

PATIENT
  Age: 44 Year
  Sex: Female

DRUGS (1)
  1. OCREVUS [Suspect]
     Active Substance: OCRELIZUMAB
     Indication: Multiple sclerosis
     Dosage: THEN 600 MG EVERY 24 WEEKS?DATE OF TREATMENT: 16/MAR/2022 (SPLIT DOSE)
     Route: 042
     Dates: start: 20220302

REACTIONS (2)
  - Urinary tract infection [Not Recovered/Not Resolved]
  - Infusion related reaction [Recovered/Resolved]
